FAERS Safety Report 9055038 (Version 2)
Quarter: 2013Q1

REPORT INFORMATION
  Report Type: Report from Study
  Country: DE (occurrence: DE)
  Receive Date: 20130206
  Receipt Date: 20130315
  Transmission Date: 20140127
  Serious: Yes (Other)
  Sender: FDA-Public Use
  Company Number: DE-ROCHE-1188324

PATIENT
  Age: 68 Year
  Sex: Female

DRUGS (1)
  1. PEG-INTERFERON ALFA 2A [Suspect]
     Indication: CHRONIC HEPATITIS C
     Route: 065
     Dates: start: 20120203

REACTIONS (1)
  - Age-related macular degeneration [Unknown]
